FAERS Safety Report 6071791-1 (Version None)
Quarter: 2009Q1

REPORT INFORMATION
  Report Type: 
  Country: None (occurrence: None)
  Receive Date: 20090210
  Receipt Date: 20090129
  Transmission Date: 20090719
  Serious: Yes (Hospitalization)
  Sender: FDA-Public Use
  Company Number: PHEH2009US00907

PATIENT
  Sex: Female
  Weight: 54.422 kg

DRUGS (4)
  1. RECLAST [Suspect]
     Indication: OSTEOPOROSIS POSTMENOPAUSAL
     Dosage: 5 MG, ONCE
     Route: 042
     Dates: start: 20081106
  2. CALCIUM [Concomitant]
  3. VITAMIN D [Concomitant]
  4. TUMS [Concomitant]

REACTIONS (9)
  - COUGH [None]
  - GASTROINTESTINAL NECROSIS [None]
  - HYPOCALCAEMIA [None]
  - HYPOXIA [None]
  - INTESTINAL RESECTION [None]
  - PAIN [None]
  - PNEUMONIA [None]
  - PYREXIA [None]
  - SMALL INTESTINAL OBSTRUCTION [None]
